FAERS Safety Report 18745266 (Version 2)
Quarter: 2022Q1

REPORT INFORMATION
  Report Type: Spontaneous
  Country: US (occurrence: US)
  Receive Date: 20210115
  Receipt Date: 20220315
  Transmission Date: 20220423
  Serious: Yes (Other)
  Sender: FDA-Public Use
  Company Number: US-GLAXOSMITHKLINE-US2020GSK258823

PATIENT
  Sex: Female

DRUGS (12)
  1. RANITIDINE [Suspect]
     Active Substance: RANITIDINE
     Indication: Hiatus hernia
     Dosage: 75 MG, QD
     Route: 065
     Dates: start: 199401, end: 201701
  2. RANITIDINE [Suspect]
     Active Substance: RANITIDINE
     Indication: Gastrooesophageal reflux disease
     Dosage: 75 MG, 1-2X A DAY AS NEEDED
     Route: 065
     Dates: start: 199401, end: 201701
  3. RANITIDINE [Suspect]
     Active Substance: RANITIDINE
     Indication: Hiatus hernia
     Dosage: 75 MG, QD
     Route: 065
     Dates: start: 199401, end: 201701
  4. RANITIDINE [Suspect]
     Active Substance: RANITIDINE
     Indication: Gastrooesophageal reflux disease
     Dosage: 75 MG, 1-2X A DAY AS NEEDED
     Route: 065
     Dates: start: 199401, end: 201701
  5. ZANTAC [Suspect]
     Active Substance: RANITIDINE HYDROCHLORIDE
     Indication: Hiatus hernia
     Dosage: 75 MG, QD
     Route: 065
     Dates: start: 199401, end: 201701
  6. ZANTAC [Suspect]
     Active Substance: RANITIDINE HYDROCHLORIDE
     Indication: Gastrooesophageal reflux disease
     Dosage: 75 MG, 1-2X A DAY AS NEEDED
     Route: 065
     Dates: start: 199401, end: 201701
  7. ZANTAC [Suspect]
     Active Substance: RANITIDINE HYDROCHLORIDE
     Indication: Hiatus hernia
     Dosage: 75 MG, QD
     Route: 065
     Dates: start: 199401, end: 201701
  8. ZANTAC [Suspect]
     Active Substance: RANITIDINE HYDROCHLORIDE
     Indication: Gastrooesophageal reflux disease
     Dosage: 75 MG, 1-2X A DAY AS NEEDED
     Route: 065
     Dates: start: 199401, end: 201701
  9. RANITIDINE [Suspect]
     Active Substance: RANITIDINE
     Indication: Hiatus hernia
     Dosage: 75 MG, QD
     Route: 065
     Dates: start: 199401, end: 201701
  10. RANITIDINE [Suspect]
     Active Substance: RANITIDINE
     Indication: Gastrooesophageal reflux disease
     Dosage: 75 MG, 1-2X A DAY AS NEEDED
     Route: 065
     Dates: start: 199401, end: 201701
  11. RANITIDINE [Suspect]
     Active Substance: RANITIDINE
     Indication: Hiatus hernia
     Dosage: 75 MG, QD
     Route: 065
     Dates: start: 199401, end: 201701
  12. RANITIDINE [Suspect]
     Active Substance: RANITIDINE
     Indication: Gastrooesophageal reflux disease
     Dosage: 75 MG, 1-2X A DAY AS NEEDED
     Route: 065
     Dates: start: 199401, end: 201701

REACTIONS (1)
  - Breast cancer [Unknown]
